FAERS Safety Report 7372988-0 (Version None)
Quarter: 2011Q1

REPORT INFORMATION
  Report Type: 
  Country: None (occurrence: None)
  Receive Date: 20110324
  Receipt Date: 20110315
  Transmission Date: 20110831
  Serious: Yes (Death, Other)
  Sender: FDA-Public Use
  Company Number: GT-PFIZER INC-2011061479

PATIENT
  Age: 49 Year
  Sex: Female

DRUGS (1)
  1. PANTECTA [Suspect]
     Indication: IRRITABLE BOWEL SYNDROME
     Dosage: 20 MG, UNK
     Dates: end: 20100101

REACTIONS (2)
  - METASTASES TO LUNG [None]
  - OVARIAN CANCER [None]
